FAERS Safety Report 9666552 (Version 1)
Quarter: 2013Q4

REPORT INFORMATION
  Report Type: Spontaneous
  Country: US (occurrence: US)
  Receive Date: 20131104
  Receipt Date: 20131104
  Transmission Date: 20140711
  Serious: Yes (Hospitalization)
  Sender: FDA-Public Use
  Company Number: US-BIOGENIDEC-2013BI086627

PATIENT
  Age: 55 Year
  Sex: Female

DRUGS (7)
  1. TECFIDERA [Suspect]
     Indication: MULTIPLE SCLEROSIS
     Route: 048
     Dates: start: 20130617
  2. LISINOPRIL [Concomitant]
  3. FLEXERIL [Concomitant]
  4. PROVIGIL [Concomitant]
  5. KLOR-CON [Concomitant]
  6. TRAZODONE HCL [Concomitant]
  7. HYDROCHLOROTHIAZIDE [Concomitant]

REACTIONS (3)
  - Rash [Unknown]
  - Fatigue [Unknown]
  - Flushing [Unknown]
